FAERS Safety Report 23441932 (Version 1)
Quarter: 2024Q1

REPORT INFORMATION
  Report Type: Report from Study
  Country: GB (occurrence: GB)
  Receive Date: 20240125
  Receipt Date: 20240125
  Transmission Date: 20240410
  Serious: Yes (Other)
  Sender: FDA-Public Use
  Company Number: GB-TAKEDA-2022TUS082813

PATIENT
  Sex: Female

DRUGS (4)
  1. HUMAN IMMUNOGLOBULIN G [Suspect]
     Active Substance: HUMAN IMMUNOGLOBULIN G
     Indication: Hypogammaglobulinaemia
     Dosage: UNK
     Route: 058
     Dates: start: 202210
  2. HUMAN IMMUNOGLOBULIN G [Suspect]
     Active Substance: HUMAN IMMUNOGLOBULIN G
     Dosage: UNK
     Route: 058
  3. HUMAN IMMUNOGLOBULIN G [Suspect]
     Active Substance: HUMAN IMMUNOGLOBULIN G
     Dosage: 200 MILLIGRAM
     Route: 058
  4. HUMAN IMMUNOGLOBULIN G [Suspect]
     Active Substance: HUMAN IMMUNOGLOBULIN G
     Dosage: UNK
     Route: 065

REACTIONS (24)
  - Hand fracture [Recovering/Resolving]
  - Ear pruritus [Unknown]
  - Infusion site rash [Recovering/Resolving]
  - Limb discomfort [Unknown]
  - Eyelid ptosis [Recovered/Resolved]
  - Needle issue [Unknown]
  - Periorbital swelling [Recovering/Resolving]
  - Joint swelling [Recovering/Resolving]
  - Vein disorder [Recovered/Resolved]
  - Paraesthesia oral [Unknown]
  - Swollen tongue [Recovered/Resolved]
  - COVID-19 [Unknown]
  - Muscle fatigue [Recovered/Resolved]
  - Infusion site mass [Unknown]
  - Contusion [Not Recovered/Not Resolved]
  - Oedema peripheral [Unknown]
  - Pain in extremity [Recovered/Resolved]
  - Injection site erythema [Recovering/Resolving]
  - Burning sensation [Unknown]
  - Infusion site erythema [Recovering/Resolving]
  - Infusion site swelling [Recovering/Resolving]
  - Infusion site pain [Recovered/Resolved]
  - Pruritus [Unknown]
  - Fatigue [Recovered/Resolved]
